FAERS Safety Report 5174624-0 (Version None)
Quarter: 2006Q4

REPORT INFORMATION
  Report Type: 
  Country: None (occurrence: None)
  Receive Date: 20061214
  Receipt Date: 20060615
  Transmission Date: 20070319
  Serious: No
  Sender: FDA-Public Use
  Company Number: US-AMGEN-KDL183127

PATIENT
  Sex: Female

DRUGS (1)
  1. ENBREL [Suspect]
     Indication: RHEUMATOID ARTHRITIS
     Route: 058
     Dates: start: 20011201

REACTIONS (6)
  - ANOREXIA [None]
  - CONDITION AGGRAVATED [None]
  - CYST [None]
  - DEPRESSION [None]
  - RHEUMATOID ARTHRITIS [None]
  - WEIGHT DECREASED [None]
